FAERS Safety Report 24523891 (Version 1)
Quarter: 2024Q4

REPORT INFORMATION
  Report Type: Spontaneous
  Country: US (occurrence: US)
  Receive Date: 20241018
  Receipt Date: 20241018
  Transmission Date: 20250115
  Serious: Yes (Death, Hospitalization, Other)
  Sender: SLATE RUN
  Company Number: US-SLATERUN-2024SRLIT00157

PATIENT
  Age: 86 Year
  Sex: Male

DRUGS (1)
  1. METOPROLOL [Suspect]
     Active Substance: METOPROLOL
     Indication: Cardiac failure
     Dosage: DAILY DOSE
     Route: 065

REACTIONS (1)
  - BRASH syndrome [Fatal]
